FAERS Safety Report 4360149-9 (Version None)
Quarter: 2004Q2

REPORT INFORMATION
  Report Type: 
  Country: None (occurrence: None)
  Receive Date: 20040519
  Receipt Date: 20030725
  Transmission Date: 20050107
  Serious: Yes (Other)
  Sender: FDA-Public Use
  Company Number: PHEH2003US06567

PATIENT
  Age: 52 Year
  Sex: Female

DRUGS (17)
  1. OXYCONTIN [Concomitant]
     Indication: PAIN
     Dosage: UNK, PRN
  2. CELEBREX [Concomitant]
     Indication: PAIN
     Dosage: 200 MG, UNK
  3. FLOVENT [Concomitant]
     Indication: ASTHMA
     Dosage: 8 PUFFS/DAY
  4. PRILOSEC [Concomitant]
     Indication: GASTROOESOPHAGEAL REFLUX DISEASE
     Dosage: 20 MG, UNK
  5. PERI-COLACE [Concomitant]
     Indication: CONSTIPATION
     Dosage: 2 UNK, UNK
  6. PERCOCET [Concomitant]
     Indication: PAIN
     Dosage: UNK, PRN
  7. PERIDEX [Concomitant]
     Dosage: 1 CAPFUL AFTER MEALS
  8. ZOFRAN [Concomitant]
     Indication: NAUSEA
     Dosage: UNK, PRN
  9. CLINDAMYCIN HCL [Concomitant]
  10. ATIVAN [Concomitant]
     Indication: ANXIETY
     Dosage: UNK, PRN
  11. XANAX [Concomitant]
     Indication: ANXIETY
     Dosage: UNK, PRN
  12. FUROSEMIDE [Concomitant]
     Indication: SWELLING
     Dosage: 40 MG, PRN
  13. K-DUR 10 [Concomitant]
     Indication: SWELLING
     Dosage: 20 MEQ, UNK
  14. ALBUTEROL [Concomitant]
     Indication: ASTHMA
     Dosage: UNK, PRN
  15. TYLENOL [Concomitant]
     Indication: PAIN
     Dosage: UNK, PRN
  16. ANZEMET [Concomitant]
  17. AREDIA [Suspect]
     Indication: BREAST CANCER METASTATIC
     Dosage: UNK/UNK

REACTIONS (15)
  - BONE DEBRIDEMENT [None]
  - CONVULSION [None]
  - DENTAL PROSTHESIS PLACEMENT [None]
  - HYPOAESTHESIA ORAL [None]
  - IMPAIRED HEALING [None]
  - MANDIBULECTOMY [None]
  - METASTASES TO CENTRAL NERVOUS SYSTEM [None]
  - OSTEOMYELITIS [None]
  - OSTEONECROSIS [None]
  - PRIMARY SEQUESTRUM [None]
  - PURULENT DISCHARGE [None]
  - SEQUESTRECTOMY [None]
  - TENDERNESS [None]
  - TOOTH DISORDER [None]
  - TOOTH EXTRACTION [None]
